FAERS Safety Report 6878340-6 (Version None)
Quarter: 2010Q3

REPORT INFORMATION
  Report Type: 
  Country: None (occurrence: None)
  Receive Date: 20100728
  Receipt Date: 20100721
  Transmission Date: 20110219
  Serious: Yes (Other)
  Sender: FDA-Public Use
  Company Number: US-PFIZER INC-2010092090

PATIENT
  Sex: Female
  Weight: 91.61 kg

DRUGS (6)
  1. DETROL LA [Suspect]
     Indication: HYPERTONIC BLADDER
     Dosage: 4 MG, 1X/DAY
     Route: 048
     Dates: start: 20090101
  2. DETROL LA [Suspect]
     Indication: INCONTINENCE
  3. METOPROLOL [Concomitant]
     Indication: HYPERTENSION
     Dosage: UNK
  4. NIFEDIPINE [Concomitant]
     Indication: HYPERTENSION
     Dosage: 60 MG, UNK
  5. WARFARIN [Concomitant]
     Dosage: 7.5 MG, UNK
  6. ALISKIREN [Concomitant]
     Dosage: UNK

REACTIONS (2)
  - MYASTHENIA GRAVIS [None]
  - RESPIRATORY FAILURE [None]
